FAERS Safety Report 6366592-0 (Version None)
Quarter: 2009Q3

REPORT INFORMATION
  Report Type: 
  Country: None (occurrence: None)
  Receive Date: 20090921
  Receipt Date: 20090831
  Transmission Date: 20100115
  Serious: No
  Sender: FDA-Public Use
  Company Number: US-ROXANE LABORATORIES, INC.-2009-RO-00886RO

PATIENT
  Sex: Female

DRUGS (11)
  1. PREDNISONE TAB [Suspect]
     Indication: RHEUMATOID ARTHRITIS
     Dosage: 5 MG
     Route: 048
  2. PREDNISONE TAB [Suspect]
     Indication: OSTEOARTHRITIS
  3. PREDNISONE TAB [Suspect]
     Indication: SYSTEMIC LUPUS ERYTHEMATOSUS
  4. FOSAMAX [Suspect]
     Indication: OSTEOPOROSIS
  5. ACTONEL [Suspect]
     Indication: OSTEOPOROSIS
  6. BLOOD PRESSURE MEDICATION [Concomitant]
     Indication: RAYNAUD'S PHENOMENON
  7. FOLIC ACID [Concomitant]
  8. METHOTREXATE [Concomitant]
  9. DEPO-PROVERA [Concomitant]
     Indication: CONTRACEPTION
  10. ALBUTEROL [Concomitant]
     Indication: ASTHMA
  11. COMPAZINE [Concomitant]

REACTIONS (7)
  - BONE DISORDER [None]
  - FOOT FRACTURE [None]
  - JAW DISORDER [None]
  - OSTEONECROSIS [None]
  - OSTEOPOROSIS [None]
  - SPINAL FRACTURE [None]
  - VIITH NERVE INJURY [None]
